FAERS Safety Report 15454712 (Version 1)
Quarter: 2018Q4

REPORT INFORMATION
  Report Type: Spontaneous
  Country: JP (occurrence: JP)
  Receive Date: 20181002
  Receipt Date: 20181002
  Transmission Date: 20190204
  Serious: No
  Sender: FDA-Public Use
  Company Number: JP-IPSEN BIOPHARMACEUTICALS, INC.-2018-15018

PATIENT
  Age: 0 Day
  Sex: Male

DRUGS (3)
  1. BIOFERMIN [Concomitant]
     Active Substance: BACILLUS SUBTILIS\LACTOBACILLUS ACIDOPHILUS\STREPTOCOCCUS FAECAIS
     Indication: ABDOMINAL DISCOMFORT
     Route: 048
     Dates: start: 20180717
  2. LANREOTIDE [Suspect]
     Active Substance: LANREOTIDE
     Route: 058
     Dates: start: 2018
  3. LANREOTIDE [Suspect]
     Active Substance: LANREOTIDE
     Indication: ACROMEGALY
     Route: 058
     Dates: start: 20180717

REACTIONS (1)
  - Diarrhoea [Recovered/Resolved]

NARRATIVE: CASE EVENT DATE: 20180718
